FAERS Safety Report 22622449 (Version 1)
Quarter: 2023Q2

REPORT INFORMATION
  Report Type: Spontaneous
  Country: FR (occurrence: FR)
  Receive Date: 20230621
  Receipt Date: 20230621
  Transmission Date: 20230721
  Serious: Yes (Hospitalization)
  Sender: FDA-Public Use
  Company Number: FR-VALIDUS PHARMACEUTICALS LLC-FR-VDP-2023-016161

PATIENT

DRUGS (7)
  1. FUROSEMIDE [Suspect]
     Active Substance: FUROSEMIDE
     Indication: Oedema due to cardiac disease
     Dosage: 2 DF, QD (2 TABLETS PER DAY, LONG-TERM)
     Route: 048
  2. SPIRONOLACTONE [Suspect]
     Active Substance: SPIRONOLACTONE
     Indication: Oedema due to cardiac disease
     Dosage: 25 MG, QD (925 MG / DAY, LONG-TERM)
     Route: 048
     Dates: end: 20230528
  3. PRADAXA [Suspect]
     Active Substance: DABIGATRAN ETEXILATE MESYLATE
     Indication: Atrial fibrillation
     Dosage: 1 DF, QD (1 TABLET PER DAY LONG-TERM)
     Route: 048
     Dates: end: 20230529
  4. ALTHIAZIDE [Suspect]
     Active Substance: ALTHIAZIDE
     Indication: Oedema due to cardiac disease
     Dosage: 15 MG, QD (15 MG/DAY, LONG TERM)
     Route: 048
     Dates: end: 20230528
  5. CHOLECALCIFEROL [Concomitant]
     Active Substance: CHOLECALCIFEROL
     Indication: Product used for unknown indication
     Dosage: UNK
     Route: 065
  6. DAFALGAN [Concomitant]
     Active Substance: ACETAMINOPHEN
     Indication: Product used for unknown indication
     Dosage: UNK
     Route: 065
  7. PRAVASTATIN SODIUM [Concomitant]
     Active Substance: PRAVASTATIN SODIUM
     Indication: Product used for unknown indication
     Dosage: UNK
     Route: 065

REACTIONS (2)
  - Haematoma [Recovering/Resolving]
  - Hyponatraemia [Recovering/Resolving]

NARRATIVE: CASE EVENT DATE: 20230528
